FAERS Safety Report 7374358-8 (Version None)
Quarter: 2011Q1

REPORT INFORMATION
  Report Type: 
  Country: None (occurrence: None)
  Receive Date: 20110325
  Receipt Date: 20110317
  Transmission Date: 20110831
  Serious: Yes (Hospitalization, Other)
  Sender: FDA-Public Use
  Company Number: US-JNJFOC-20110307934

PATIENT
  Age: 50 Year
  Sex: Male
  Weight: 98.88 kg

DRUGS (8)
  1. TRICOR [Concomitant]
     Indication: BLOOD CHOLESTEROL INCREASED
     Route: 048
  2. OXYCODONE [Suspect]
     Indication: PRODUCT USED FOR UNKNOWN INDICATION
     Route: 048
  3. METHADONE [Concomitant]
     Indication: PAIN
     Route: 065
  4. WARFARIN [Concomitant]
     Route: 048
  5. TYLENOL W/ CODEINE [Suspect]
     Indication: PRODUCT USED FOR UNKNOWN INDICATION
     Route: 048
  6. TESTOSTERONE [Concomitant]
     Route: 065
  7. ADVIL LIQUI-GELS [Suspect]
     Indication: HEADACHE
     Route: 048
  8. WARFARIN [Concomitant]
     Indication: ANTICOAGULANT THERAPY
     Route: 048

REACTIONS (5)
  - PRURITUS [None]
  - WEIGHT FLUCTUATION [None]
  - HYPERSENSITIVITY [None]
  - BLOOD GLUCOSE INCREASED [None]
  - SKIN PAPILLOMA [None]
